FAERS Safety Report 10191178 (Version 1)
Quarter: 2014Q2

REPORT INFORMATION
  Report Type: Report from Study
  Country: US (occurrence: US)
  Receive Date: 20140523
  Receipt Date: 20140523
  Transmission Date: 20141212
  Serious: Yes (Hospitalization)
  Sender: FDA-Public Use
  Company Number: US-SA-2014SA064390

PATIENT
  Age: 32 Year
  Sex: Female
  Weight: 79.37 kg

DRUGS (12)
  1. ALEMTUZUMAB [Suspect]
     Indication: MULTIPLE SCLEROSIS
     Route: 042
     Dates: start: 20140203, end: 20140207
  2. SOLUMEDROL [Suspect]
     Indication: PRODUCT USED FOR UNKNOWN INDICATION
     Route: 042
     Dates: start: 20140203, end: 20140205
  3. CEFTRIAXONE [Concomitant]
     Dates: start: 201402, end: 201402
  4. PHENERGAN [Concomitant]
     Dates: start: 201402
  5. STADOL [Concomitant]
     Dates: start: 201402
  6. CIPROFLOXACIN [Concomitant]
     Route: 048
     Dates: start: 201402
  7. ACYCLOVIR [Concomitant]
     Route: 048
  8. BACLOFEN [Concomitant]
  9. TRAMADOL [Concomitant]
  10. DIAZEPAM [Concomitant]
  11. VYVANSE [Concomitant]
  12. HYDROXYZINE HYDROCHLORIDE [Concomitant]
     Route: 048

REACTIONS (1)
  - Cholecystitis [Unknown]
